FAERS Safety Report 5174347-8 (Version None)
Quarter: 2006Q4

REPORT INFORMATION
  Report Type: 
  Country: None (occurrence: None)
  Receive Date: 20061214
  Receipt Date: 20061115
  Transmission Date: 20070319
  Serious: Yes (Other)
  Sender: FDA-Public Use
  Company Number: AU-BRISTOL-MYERS SQUIBB COMPANY-13579875

PATIENT
  Age: 29 Year
  Sex: Female
  Weight: 73 kg

DRUGS (2)
  1. BUSPAR [Suspect]
     Indication: ANXIETY DISORDER
     Route: 048
     Dates: start: 20061106, end: 20061114
  2. AVANZA [Concomitant]
     Indication: DEPRESSION
     Dates: start: 20061106

REACTIONS (5)
  - ANXIETY [None]
  - COORDINATION ABNORMAL [None]
  - EYE MOVEMENT DISORDER [None]
  - PRURITUS GENERALISED [None]
  - SPEECH DISORDER [None]
